FAERS Safety Report 9006233 (Version 1)
Quarter: 2013Q1

REPORT INFORMATION
  Report Type: Spontaneous
  Country: US (occurrence: US)
  Receive Date: 20130110
  Receipt Date: 20130110
  Transmission Date: 20140127
  Serious: Yes (Other)
  Sender: FDA-Public Use
  Company Number: US-009507513-0901USA02256

PATIENT
  Age: 16 Year
  Sex: Female
  Weight: 57.15 kg

DRUGS (2)
  1. SINGULAIR [Suspect]
     Indication: BRONCHOSPASM
     Dosage: 10 MG, QPM
     Route: 048
     Dates: start: 20070907, end: 20080630
  2. SINGULAIR [Suspect]
     Indication: RHINITIS ALLERGIC

REACTIONS (3)
  - Abnormal behaviour [Recovering/Resolving]
  - Mood swings [Recovering/Resolving]
  - Negative thoughts [Recovering/Resolving]
